FAERS Safety Report 10636774 (Version 1)
Quarter: 2014Q4

REPORT INFORMATION
  Report Type: Spontaneous
  Country: FR (occurrence: None)
  Receive Date: 20141204
  Receipt Date: 20141204
  Transmission Date: 20150529
  Serious: Yes (Hospitalization)
  Sender: FDA-Public Use
  Company Number: 2014-003459

PATIENT
  Age: 79 Year
  Sex: Female

DRUGS (8)
  1. ACTONEL [Suspect]
     Active Substance: RISEDRONATE SODIUM
     Dosage: UKNOWN, ORAL
     Route: 048
     Dates: start: 2012
  2. ALOMIDE [Suspect]
     Active Substance: LODOXAMIDE TROMETHAMINE
     Dates: start: 2012
  3. SYMBICORT [Suspect]
     Active Substance: BUDESONIDE\FORMOTEROL FUMARATE DIHYDRATE
     Dates: start: 2012
  4. CRESTOR [Suspect]
     Active Substance: ROSUVASTATIN CALCIUM
     Dosage: UKNOWN, ORAL
     Dates: start: 2012
  5. DAFLON (DIOSMIN) [Suspect]
     Active Substance: DIOSMIN
     Dates: start: 2012
  6. SULFARLEM [Suspect]
     Active Substance: ANETHOLTRITHION
     Dosage: UKNOWN, ORAL
     Route: 048
     Dates: start: 2012
  7. DETENSIEL/00802601/(BISOPROLOL) [Suspect]
     Active Substance: BISOPROLOL FUMARATE
     Dosage: UKNOWN, ORAL
     Route: 048
  8. CHONDROSULF(CHONDROITIN SULFATE SODIUM) [Suspect]
     Active Substance: CHONDROITIN SULFATE (CHICKEN)
     Dosage: UKNOWN, ORAL
     Route: 048
     Dates: start: 2012

REACTIONS (1)
  - Eczema [None]

NARRATIVE: CASE EVENT DATE: 201408
